FAERS Safety Report 8136766-7 (Version None)
Quarter: 2012Q1

REPORT INFORMATION
  Report Type: 
  Country: None (occurrence: None)
  Receive Date: 20120214
  Receipt Date: 20120209
  Transmission Date: 20120608
  Serious: Yes (Other)
  Sender: FDA-Public Use
  Company Number: US-AMGEN-USASP2011032448

PATIENT
  Age: 67 Year
  Sex: Female
  Weight: 72.109 kg

DRUGS (14)
  1. PROLIA [Suspect]
     Indication: OSTEOPOROSIS POSTMENOPAUSAL
     Dosage: UNK UNK, Q6MO
     Route: 058
     Dates: start: 20110622
  2. VITAMIN B COMPLEX CAP [Concomitant]
  3. EXFORGE [Concomitant]
  4. EPIPEN [Concomitant]
  5. PROMETHAZINE [Concomitant]
  6. VITAMIN D [Concomitant]
  7. WELLBUTRIN [Concomitant]
  8. ARICEPT [Concomitant]
  9. MULTIPLE VITAMIN [Concomitant]
  10. BYSTOLIC [Concomitant]
  11. SINGULAIR [Concomitant]
  12. PLAVIX [Concomitant]
  13. CRESTOR [Concomitant]
  14. LEVOTHYROXINE SODIUM [Concomitant]

REACTIONS (3)
  - FACE OEDEMA [None]
  - LIP SWELLING [None]
  - EYE SWELLING [None]
